FAERS Safety Report 22093832 (Version 1)
Quarter: 2023Q1

REPORT INFORMATION
  Report Type: Spontaneous
  Country: US (occurrence: None)
  Receive Date: 20230314
  Receipt Date: 20230314
  Transmission Date: 20230418
  Serious: Yes (Other)
  Sender: FDA-Public Use
  Company Number: None

PATIENT
  Age: 48 Year
  Sex: Female
  Weight: 47.25 kg

DRUGS (5)
  1. CLONAZEPAM [Suspect]
     Active Substance: CLONAZEPAM
     Indication: Restless legs syndrome
     Dosage: OTHER QUANTITY : 1 TABLET(S);?FREQUENCY : DAILY;?
     Route: 048
     Dates: start: 20230218, end: 20230303
  2. KLONOPIN [Concomitant]
     Active Substance: CLONAZEPAM
  3. HRT trochee [Concomitant]
  4. VITAMINS [Concomitant]
     Active Substance: VITAMINS
  5. MAGNESIUM GLYCINATE [Concomitant]
     Active Substance: MAGNESIUM GLYCINATE

REACTIONS (5)
  - Product substitution issue [None]
  - Withdrawal syndrome [None]
  - Suspected product quality issue [None]
  - Product substitution issue [None]
  - Product availability issue [None]

NARRATIVE: CASE EVENT DATE: 20230221
